FAERS Safety Report 9325268 (Version 1)
Quarter: 2013Q2

REPORT INFORMATION
  Report Type: Report from Study
  Country: CA (occurrence: CA)
  Receive Date: 20130604
  Receipt Date: 20130604
  Transmission Date: 20140414
  Serious: Yes (Other)
  Sender: FDA-Public Use
  Company Number: CA-ROCHE-1231743

PATIENT
  Sex: Female
  Weight: 53.1 kg

DRUGS (8)
  1. RITUXAN [Suspect]
     Indication: DERMATOMYOSITIS
     Dosage: DAY 1 AND DAY 15. MOST RECENT DOSE PRIOR TO SAE WAS ON 17/APR/2013
     Route: 042
     Dates: start: 20090910
  2. RITUXAN [Suspect]
     Indication: OFF LABEL USE
  3. RITUXAN [Suspect]
     Indication: ARTHRITIS
  4. DIPHENHYDRAMINE HCL [Concomitant]
     Indication: PREMEDICATION
     Route: 048
     Dates: start: 20090910
  5. ACETAMINOPHEN [Concomitant]
     Indication: PREMEDICATION
     Route: 048
     Dates: start: 20090910
  6. METHYLPREDNISOLONE [Concomitant]
     Indication: PREMEDICATION
     Route: 042
     Dates: start: 20090910
  7. PREDNISONE [Concomitant]
  8. OMEPRAZOLE [Concomitant]

REACTIONS (1)
  - Finger amputation [Not Recovered/Not Resolved]
